FAERS Safety Report 7455757-2 (Version None)
Quarter: 2011Q2

REPORT INFORMATION
  Report Type: 
  Country: None (occurrence: None)
  Receive Date: 20110503
  Receipt Date: 20110419
  Transmission Date: 20111010
  Serious: Yes (Other)
  Sender: FDA-Public Use
  Company Number: PHHY2011US07732

PATIENT
  Sex: Female

DRUGS (8)
  1. MOBIC [Concomitant]
     Dosage: 15 MG, QD
     Route: 048
  2. GLEEVEC [Suspect]
     Indication: GASTROINTESTINAL STROMAL TUMOUR
     Dosage: 400 MG, QD
     Route: 048
     Dates: start: 20101209
  3. SIMVASTATIN [Concomitant]
     Dosage: 40 MG, QD
     Route: 048
  4. KLOR-CON [Concomitant]
     Dosage: 20 MEQ, ONE PACKET TWICE A DAILY
     Route: 048
  5. TRIAMTERENE AND HYDROCHLOROTHIAZID [Concomitant]
     Dosage: 37.5-25 MG, ONCE DAILY
     Route: 048
  6. OMEPRAZOLE [Concomitant]
     Dosage: 20 MG, DR ONE DAILY
     Route: 048
  7. VIVELLE-DOT [Concomitant]
     Dosage: 0.1 MG, 24 HR PATCH BIWEEKLY, 1 TRANSDERMAL BI-WEEKLY
     Route: 062
  8. PROCHLORPERAZINE MALEATE [Concomitant]
     Dosage: 10 MG, ONE TABLET EVERY FOR HOURS AS NEEDED
     Route: 048
     Dates: start: 20101201

REACTIONS (16)
  - NEUROFIBROMATOSIS [None]
  - CHILLS [None]
  - NAUSEA [None]
  - HYPERTENSION [None]
  - HYPERCHOLESTEROLAEMIA [None]
  - OROPHARYNGEAL DISCOMFORT [None]
  - HEART RATE INCREASED [None]
  - UPPER-AIRWAY COUGH SYNDROME [None]
  - NASAL CONGESTION [None]
  - COUGH [None]
  - ABDOMINAL TENDERNESS [None]
  - GLUCOSE TOLERANCE IMPAIRED [None]
  - PYREXIA [None]
  - RHINORRHOEA [None]
  - GASTROOESOPHAGEAL REFLUX DISEASE [None]
  - DIARRHOEA [None]
